FAERS Safety Report 14837256 (Version 2)
Quarter: 2018Q2

REPORT INFORMATION
  Report Type: Spontaneous
  Country: US (occurrence: US)
  Receive Date: 20180502
  Receipt Date: 20180514
  Transmission Date: 20180711
  Serious: No
  Sender: FDA-Public Use
  Company Number: US-BAYER-2018-082427

PATIENT
  Age: 56 Year
  Sex: Male
  Weight: 68.03 kg

DRUGS (4)
  1. CLARITIN [Suspect]
     Active Substance: LORATADINE
     Indication: HYPERSENSITIVITY
  2. CLARITIN [Suspect]
     Active Substance: LORATADINE
     Indication: NASOPHARYNGITIS
  3. CLARITIN [Suspect]
     Active Substance: LORATADINE
     Indication: RHINORRHOEA
     Dosage: 1 DF, QD(FOR 5 DAYS)
     Route: 048
     Dates: start: 20180422, end: 20180427
  4. CLARITIN [Suspect]
     Active Substance: LORATADINE
     Indication: EYE PRURITUS

REACTIONS (4)
  - Rhinalgia [Recovered/Resolved]
  - Throat irritation [Recovered/Resolved]
  - Eye irritation [Recovered/Resolved]
  - Drug ineffective [Recovered/Resolved]

NARRATIVE: CASE EVENT DATE: 20180422
